FAERS Safety Report 25712027 (Version 1)
Quarter: 2025Q3

REPORT INFORMATION
  Report Type: Spontaneous
  Country: TW (occurrence: TW)
  Receive Date: 20250821
  Receipt Date: 20250821
  Transmission Date: 20251020
  Serious: Yes (Other)
  Sender: PFIZER
  Company Number: TW-PFIZER INC-PV202500100751

PATIENT
  Age: 19 Year
  Sex: Female

DRUGS (1)
  1. ABROCITINIB [Suspect]
     Active Substance: ABROCITINIB

REACTIONS (2)
  - Blood triglycerides increased [Unknown]
  - Low density lipoprotein increased [Unknown]
